FAERS Safety Report 13992995 (Version 1)
Quarter: 2017Q3

REPORT INFORMATION
  Report Type: Spontaneous
  Country: US (occurrence: US)
  Receive Date: 20170920
  Receipt Date: 20170920
  Transmission Date: 20171128
  Serious: Yes (Other)
  Sender: FDA-Public Use
  Company Number: US-PFIZER INC-2017400311

PATIENT
  Age: 57 Year
  Sex: Female

DRUGS (1)
  1. METHOTREXATE SODIUM. [Suspect]
     Active Substance: METHOTREXATE SODIUM
     Dosage: 0.8 ML, WEEKLY
     Route: 058

REACTIONS (28)
  - Musculoskeletal stiffness [Unknown]
  - Oedema peripheral [Unknown]
  - Nodal osteoarthritis [Unknown]
  - Hypermobility syndrome [Unknown]
  - Joint swelling [Unknown]
  - Photosensitivity reaction [Unknown]
  - Rheumatic disorder [Unknown]
  - Joint crepitation [Unknown]
  - Myalgia [Unknown]
  - Increased tendency to bruise [Unknown]
  - Sjogren^s syndrome [Unknown]
  - Inflammation [Unknown]
  - Pain [Unknown]
  - Appetite disorder [Unknown]
  - Raynaud^s phenomenon [Unknown]
  - Arthralgia [Unknown]
  - Back pain [Unknown]
  - Vision blurred [Unknown]
  - Headache [Unknown]
  - Rheumatoid arthritis [Unknown]
  - Haemorrhagic diathesis [Unknown]
  - Snoring [Unknown]
  - Fatigue [Unknown]
  - Mobility decreased [Unknown]
  - Gait disturbance [Unknown]
  - Paraesthesia [Unknown]
  - Cough [Unknown]
  - Joint range of motion decreased [Unknown]
